FAERS Safety Report 7974671-7 (Version None)
Quarter: 2011Q4

REPORT INFORMATION
  Report Type: 
  Country: None (occurrence: None)
  Receive Date: 20111213
  Receipt Date: 20111207
  Transmission Date: 20120403
  Serious: Yes (Hospitalization)
  Sender: FDA-Public Use
  Company Number: PHHY2011JP107597

PATIENT
  Age: 52 Year
  Sex: Male

DRUGS (9)
  1. LITHIUM CARBONATE [Suspect]
     Indication: BIPOLAR I DISORDER
     Dosage: 400 MG/H, UNK
     Route: 048
  2. AMOBARBITAL SODIUM [Concomitant]
     Dosage: 0.3 MG, UNK
     Route: 048
  3. VALSARTAN [Suspect]
     Indication: HYPERTENSION
     Dosage: 80 MG, UNK
     Route: 048
  4. DIPYRIDAMOLE [Concomitant]
     Dosage: 300 MG, UNK
     Route: 048
  5. ETIZOLAM [Concomitant]
     Dosage: 2 MG, UNK
     Route: 048
  6. ATORVASTATIN CALCIUM [Concomitant]
     Dosage: 5 MG, UNK
     Route: 048
  7. ALLOPURINOL [Concomitant]
     Dosage: 100 MG, UNK
     Route: 048
  8. VALPROATE SODIUM [Concomitant]
     Dosage: 400 MG, UNK
     Route: 048
  9. PAROXETINE HCL [Concomitant]
     Dosage: 10 MG, UNK
     Route: 048

REACTIONS (1)
  - NEPHROGENIC DIABETES INSIPIDUS [None]
